FAERS Safety Report 19499836 (Version 2)
Quarter: 2025Q4

REPORT INFORMATION
  Report Type: Spontaneous
  Country: EU (occurrence: EU)
  Receive Date: 20210707
  Receipt Date: 20251223
  Transmission Date: 20260117
  Serious: Yes (Hospitalization)
  Sender: AUROBINDO
  Company Number: EU-ADRED-06578-01

PATIENT
  Age: 80 Year
  Sex: Male
  Weight: 73 kg

DRUGS (10)
  1. SIMVASTATIN [Suspect]
     Active Substance: SIMVASTATIN
     Indication: Product used for unknown indication
     Dosage: 40 MILLIGRAM, ONCE A DAY (0-0-1-0)
     Route: 061
  2. PRAVASTATIN [Suspect]
     Active Substance: PRAVASTATIN
     Indication: Product used for unknown indication
     Dosage: 40 MILLIGRAM, ONCE A DAY (0-0-1-0)
     Route: 061
  3. Metoprolol# [Concomitant]
     Indication: Product used for unknown indication
     Dosage: 23.75 MILLIGRAM, ONCE A DAY ( 0-0-1-0,)
     Route: 061
  4. Candesartan# [Concomitant]
     Indication: Product used for unknown indication
     Dosage: 8 MILLIGRAM, ONCE A DAY (1-0-0-0)
     Route: 061
  5. Amlodipin# [Concomitant]
     Indication: Product used for unknown indication
     Dosage: 5 MILLIGRAM, ONCE A DAY ( 1-0-0-0)
     Route: 061
  6. Metformin# [Concomitant]
     Indication: Product used for unknown indication
     Dosage: 500 MILLIGRAM, TWO TIMES A DAY (1-0-1-0)
     Route: 061
  7. Clopidogrel# [Concomitant]
     Indication: Product used for unknown indication
     Dosage: 75 MILLIGRAM, ONCE A DAY (1-0-0-0)
     Route: 061
  8. c [Concomitant]
     Indication: Product used for unknown indication
     Dosage: 100 MILLIGRAM, TWO TIMES A DAY (1-0-1-0)
     Route: 061
  9. Insulin glargin# [Concomitant]
     Indication: Product used for unknown indication
     Dosage: 40 INTERNATIONAL UNIT, ONCE A DAY (0-0-1-0)
  10. Levothyroxin-Natrium# [Concomitant]
     Indication: Product used for unknown indication
     Dosage: 100 MICROGRAM, ONCE A DAY (1-0-0-0)
     Route: 061

REACTIONS (3)
  - Dyschezia [Unknown]
  - Weight decreased [Unknown]
  - Dysuria [Unknown]
